FAERS Safety Report 5239477-0 (Version None)
Quarter: 2007Q1

REPORT INFORMATION
  Report Type: 
  Country: None (occurrence: None)
  Receive Date: 20070216
  Receipt Date: 20070206
  Transmission Date: 20070707
  Serious: Yes (Hospitalization, Other)
  Sender: FDA-Public Use
  Company Number: US-AMGEN-STX210133

PATIENT
  Sex: Female

DRUGS (1)
  1. ENBREL [Suspect]
     Indication: ANKYLOSING SPONDYLITIS
     Route: 058
     Dates: start: 20040101

REACTIONS (5)
  - CHEST PAIN [None]
  - LABYRINTHITIS [None]
  - MUSCLE SPASMS [None]
  - PYREXIA [None]
  - SINUSITIS [None]
